FAERS Safety Report 24719172 (Version 2)
Quarter: 2024Q4

REPORT INFORMATION
  Report Type: Spontaneous
  Country: DE (occurrence: DE)
  Receive Date: 20241210
  Receipt Date: 20241226
  Transmission Date: 20250115
  Serious: Yes (Other)
  Sender: ALEXION PHARMACEUTICALS
  Company Number: DE-AstraZeneca-CH-00760019AM

PATIENT
  Age: 80 Year

DRUGS (6)
  1. ROFLUMILAST [Suspect]
     Active Substance: ROFLUMILAST
     Dosage: 250 MILLIGRAM
  2. ROFLUMILAST [Suspect]
     Active Substance: ROFLUMILAST
     Dosage: 250 MILLIGRAM
     Route: 048
  3. ROFLUMILAST [Suspect]
     Active Substance: ROFLUMILAST
     Dosage: 250 MILLIGRAM
  4. ROFLUMILAST [Suspect]
     Active Substance: ROFLUMILAST
     Dosage: 250 MILLIGRAM
     Route: 048
  5. LETROZOLE [Concomitant]
     Active Substance: LETROZOLE
     Route: 065
  6. LETROZOLE [Concomitant]
     Active Substance: LETROZOLE
     Route: 065

REACTIONS (2)
  - Neoplasm malignant [Unknown]
  - Chronic obstructive pulmonary disease [Unknown]
